FAERS Safety Report 9868951 (Version 11)
Quarter: 2019Q2

REPORT INFORMATION
  Report Type: Report from Study
  Country: CA (occurrence: CA)
  Receive Date: 20140205
  Receipt Date: 20190612
  Transmission Date: 20190711
  Serious: Yes (Disabling, Other)
  Sender: FDA-Public Use
  Company Number: CA-ROCHE-1125368

PATIENT
  Age: 50 Year
  Sex: Female
  Weight: 52.21 kg

DRUGS (28)
  1. FOLIC ACID. [Concomitant]
     Active Substance: FOLIC ACID
  2. SOLU-MEDROL [Concomitant]
     Active Substance: METHYLPREDNISOLONE SODIUM SUCCINATE
     Route: 042
     Dates: start: 20120913
  3. PULMICORT TURBUHALER [Concomitant]
     Active Substance: BUDESONIDE
  4. METHOTREXATE. [Concomitant]
     Active Substance: METHOTREXATE
     Dosage: METHOTREXATE DOSE INCREASED AFTER FEB/2014
     Route: 065
  5. ACETAMINOPHEN. [Concomitant]
     Active Substance: ACETAMINOPHEN
     Indication: PREMEDICATION
     Route: 048
     Dates: start: 20171106
  6. DIVALPROEX [Concomitant]
     Active Substance: DIVALPROEX SODIUM
  7. BETAHISTINE [Concomitant]
     Active Substance: BETAHISTINE
  8. PREDNISONE. [Concomitant]
     Active Substance: PREDNISONE
  9. METHYLPREDNISOLONE. [Concomitant]
     Active Substance: METHYLPREDNISOLONE
     Indication: PREMEDICATION
     Route: 042
     Dates: start: 20171106
  10. PRISTIQ EXTENDED-RELEASE [Concomitant]
     Active Substance: DESVENLAFAXINE SUCCINATE
  11. BENADRYL [Concomitant]
     Active Substance: DIPHENHYDRAMINE HYDROCHLORIDE
     Route: 048
     Dates: start: 20171106
  12. OMEGA 9 FATTY ACIDS [Concomitant]
  13. SYMBICORT [Concomitant]
     Active Substance: BUDESONIDE\FORMOTEROL FUMARATE DIHYDRATE
  14. BENADRYL [Concomitant]
     Active Substance: DIPHENHYDRAMINE HYDROCHLORIDE
     Dosage: ONCE
     Route: 048
     Dates: start: 20120913
  15. TYLENOL [Concomitant]
     Active Substance: ACETAMINOPHEN
     Route: 048
     Dates: start: 20120913
  16. SOLU-MEDROL [Concomitant]
     Active Substance: METHYLPREDNISOLONE SODIUM SUCCINATE
     Dosage: ONCE
     Route: 042
     Dates: start: 20120910
  17. OMEGA 3 [DOCOSAHEXAENOIC ACID;EICOSAPENTAENOIC ACID] [Concomitant]
  18. RITUXAN [Suspect]
     Active Substance: RITUXIMAB
     Route: 042
     Dates: start: 20140407
  19. BACLOFEN. [Concomitant]
     Active Substance: BACLOFEN
  20. TYLENOL [Concomitant]
     Active Substance: ACETAMINOPHEN
     Dosage: ONCE
     Route: 048
     Dates: start: 20120910
  21. CITALOPRAM [Concomitant]
     Active Substance: CITALOPRAM HYDROBROMIDE
  22. LEVOTHYROXINE. [Concomitant]
     Active Substance: LEVOTHYROXINE
  23. VENTOLIN [Concomitant]
     Active Substance: ALBUTEROL SULFATE
  24. RITUXAN [Suspect]
     Active Substance: RITUXIMAB
     Indication: MICROSCOPIC POLYANGIITIS
     Dosage: DATE OF LAST RECEIVED DOSE OF RITUXIMAB: 01/OCT/2012
     Route: 042
     Dates: start: 20120910
  25. DIPHENHYDRAMINE HCL [Concomitant]
     Active Substance: DIPHENHYDRAMINE HYDROCHLORIDE
     Indication: PREMEDICATION
     Route: 048
     Dates: start: 20171106
  26. CRANBERRY [VACCINIUM SPP.] [Concomitant]
  27. RITUXAN [Suspect]
     Active Substance: RITUXIMAB
     Indication: LUPUS-LIKE SYNDROME
     Route: 042
     Dates: start: 20120913
  28. RITUXAN [Suspect]
     Active Substance: RITUXIMAB
     Dosage: THIS INFUSION # 15
     Route: 042
     Dates: start: 20171106

REACTIONS (21)
  - Sinus disorder [Unknown]
  - Hypokinesia [Unknown]
  - Anxiety [Unknown]
  - Infusion related reaction [Recovered/Resolved]
  - Presyncope [Recovered/Resolved]
  - Fatigue [Unknown]
  - Blood pressure increased [Unknown]
  - Intentional product use issue [Unknown]
  - Arthralgia [Unknown]
  - Off label use [Unknown]
  - Sinusitis [Not Recovered/Not Resolved]
  - Pain in extremity [Recovered/Resolved]
  - Somnolence [Unknown]
  - Heart rate increased [Unknown]
  - Dyspnoea [Not Recovered/Not Resolved]
  - Neck pain [Not Recovered/Not Resolved]
  - Pain in jaw [Recovered/Resolved]
  - Haemorrhage [Unknown]
  - Vulvovaginal dryness [Not Recovered/Not Resolved]
  - Pain in extremity [Unknown]
  - Heart rate decreased [Unknown]

NARRATIVE: CASE EVENT DATE: 20120914
